FAERS Safety Report 18989450 (Version 1)
Quarter: 2021Q1

REPORT INFORMATION
  Report Type: Spontaneous
  Country: CA (occurrence: CA)
  Receive Date: 20210310
  Receipt Date: 20210310
  Transmission Date: 20210420
  Serious: Yes (Hospitalization, Other)
  Sender: FDA-Public Use
  Company Number: CA-B.I. PHARMACEUTICALS,INC./RIDGEFIELD-2021-BI-087661

PATIENT
  Age: 84 Year
  Sex: Female

DRUGS (3)
  1. NOVOLIN NOS [Suspect]
     Active Substance: INSULIN HUMAN
     Indication: DIABETES MELLITUS
     Route: 058
  2. TRAJENTA [Suspect]
     Active Substance: LINAGLIPTIN
     Indication: DIABETES MELLITUS
     Route: 048
  3. NOVOLIN NOS [Suspect]
     Active Substance: INSULIN HUMAN
     Route: 058

REACTIONS (3)
  - Hypothermia [Recovering/Resolving]
  - Bradycardia [Recovering/Resolving]
  - Hypoglycaemia [Recovering/Resolving]
